FAERS Safety Report 8814076 (Version 3)
Quarter: 2012Q4

REPORT INFORMATION
  Report Type: 
  Country: US (occurrence: US)
  Receive Date: 20120928
  Receipt Date: 20121214
  Transmission Date: 20130627
  Serious: No
  Sender: FDA-Public Use
  Company Number: US-PFIZER INC-2012237943

PATIENT
  Age: 48 Year
  Sex: Female
  Weight: 53.97 kg

DRUGS (6)
  1. CELEBREX [Suspect]
     Indication: NEUROLOGICAL DISORDER NOS
     Dosage: 50 mg, 3x/day
     Dates: start: 2009, end: 2009
  2. CELEBREX [Suspect]
     Indication: INTERVERTEBRAL DISC DEGENERATION
  3. GABAPENTIN [Suspect]
     Indication: NEUROLOGICAL DISORDER NOS
     Dosage: either 50mg or 75mg, 3x/day
     Dates: start: 2009
  4. GABAPENTIN [Suspect]
     Indication: INTERVERTEBRAL DISC DEGENERATION
  5. LYRICA [Suspect]
     Dosage: UNK
  6. CYMBALTA [Concomitant]
     Dosage: UNK

REACTIONS (9)
  - Drug ineffective [Unknown]
  - Restlessness [Recovered/Resolved]
  - Irritability [Recovered/Resolved]
  - Agitation [Unknown]
  - Abdominal distension [Unknown]
  - Gastric disorder [Unknown]
  - Muscle spasms [Unknown]
  - Anxiety [Unknown]
  - Musculoskeletal discomfort [Unknown]
